FAERS Safety Report 11076720 (Version 3)
Quarter: 2015Q4

REPORT INFORMATION
  Report Type: Report from Study
  Country: JP (occurrence: JP)
  Receive Date: 20150429
  Receipt Date: 20151207
  Transmission Date: 20160304
  Serious: Yes (Life-Threatening, Hospitalization, Other)
  Sender: FDA-Public Use
  Company Number: JP-ACTELION-A-CH2013-85480

PATIENT
  Age: 35 Year
  Sex: Male

DRUGS (34)
  1. ZAVESCA [Suspect]
     Active Substance: MIGLUSTAT
     Indication: NIEMANN-PICK DISEASE
     Dosage: 166.66 MG, TID
     Route: 048
     Dates: start: 20130215, end: 20130228
  2. ZAVESCA [Suspect]
     Active Substance: MIGLUSTAT
     Dosage: 133.33 MG, TID
     Route: 048
     Dates: start: 20130201, end: 20130214
  3. BOTULINUM TOXIN TYPE A [Concomitant]
     Active Substance: BOTULINUM TOXIN TYPE A
  4. ZAVESCA [Suspect]
     Active Substance: MIGLUSTAT
     Dosage: 100 MG, TID
     Route: 048
     Dates: start: 20141215
  5. ZOSYN [Suspect]
     Active Substance: PIPERACILLIN SODIUM\TAZOBACTAM SODIUM
     Dosage: 18 G, UNK
     Route: 042
     Dates: start: 20140907, end: 20140929
  6. CARBOCISTEINE [Concomitant]
     Active Substance: CARBOCYSTEINE
  7. TRIENTINE [Concomitant]
     Active Substance: TRIENTINE
  8. DOMPERIDONE [Concomitant]
     Active Substance: DOMPERIDONE
  9. AMBROXOL [Concomitant]
     Active Substance: AMBROXOL
  10. BIFIDOBACTERIUM BIFIDUM [Concomitant]
  11. ZAVESCA [Suspect]
     Active Substance: MIGLUSTAT
     Dosage: 100 MG, TID
     Route: 048
     Dates: start: 20130302, end: 20130429
  12. MEROPENEM. [Suspect]
     Active Substance: MEROPENEM
     Indication: PNEUMONIA
     Dosage: 6 G, UNK
     Route: 042
     Dates: start: 20141025, end: 20141104
  13. MEROPENEM. [Suspect]
     Active Substance: MEROPENEM
     Dosage: 6 G, UNK
     Route: 042
     Dates: start: 20141109, end: 20141118
  14. LOPERAMIDE HYDROCHLORIDE. [Concomitant]
     Active Substance: LOPERAMIDE HYDROCHLORIDE
  15. MOSAPRIDE [Concomitant]
     Active Substance: MOSAPRIDE
  16. ALBUMIN TANNATE [Concomitant]
     Active Substance: ALBUMIN BOVINE\TANNIC ACID
  17. ZAVESCA [Suspect]
     Active Substance: MIGLUSTAT
     Dosage: UNK
     Route: 048
     Dates: start: 20130430, end: 20131009
  18. ZAVESCA [Suspect]
     Active Substance: MIGLUSTAT
     Dosage: 100 MG, TID
     Route: 048
     Dates: start: 20141105, end: 20141109
  19. ZOSYN [Suspect]
     Active Substance: PIPERACILLIN SODIUM\TAZOBACTAM SODIUM
     Dosage: 18 G, UNK
     Route: 042
     Dates: start: 20140520, end: 20140529
  20. CEFCAPENE PIVOXIL [Concomitant]
     Active Substance: CEFCAPENE PIVOXIL
  21. METRONIDAZOLE. [Concomitant]
     Active Substance: METRONIDAZOLE
  22. AMBROXOL HYDROCHLORIDE [Concomitant]
     Active Substance: AMBROXOL HYDROCHLORIDE
  23. LACTOMIN [Concomitant]
     Active Substance: LACTOBACILLUS ACIDOPHILUS
  24. LEVOCETIRIZINE [Concomitant]
     Active Substance: LEVOCETIRIZINE
  25. ZAVESCA [Suspect]
     Active Substance: MIGLUSTAT
     Dosage: 100 MG, TID
     Route: 048
     Dates: start: 20131009, end: 20141023
  26. ZOSYN [Suspect]
     Active Substance: PIPERACILLIN SODIUM\TAZOBACTAM SODIUM
     Dosage: 18 G, UNK
     Route: 042
     Dates: start: 20140930, end: 20141008
  27. ZOSYN [Suspect]
     Active Substance: PIPERACILLIN SODIUM\TAZOBACTAM SODIUM
     Dosage: 18 G, UNK
     Route: 042
     Dates: start: 20141020, end: 20141025
  28. FAMOTIDINE. [Concomitant]
     Active Substance: FAMOTIDINE
  29. TRIHEXYPHENIDYL [Concomitant]
     Active Substance: TRIHEXYPHENIDYL
  30. ALUMINIUM SILICATE [Concomitant]
  31. ZAVESCA [Suspect]
     Active Substance: MIGLUSTAT
     Dosage: UNK MG, UNK
     Route: 048
     Dates: start: 20130118, end: 20130131
  32. ZOSYN [Suspect]
     Active Substance: PIPERACILLIN SODIUM\TAZOBACTAM SODIUM
     Indication: PNEUMONIA
     Dosage: 18 G, UNK
     Route: 042
     Dates: start: 20140315, end: 20140323
  33. CLONAZEPAM. [Concomitant]
     Active Substance: CLONAZEPAM
  34. SODIUM VALPROATE [Concomitant]
     Active Substance: VALPROATE SODIUM

REACTIONS (13)
  - Restlessness [Recovered/Resolved]
  - Pneumonia aspiration [Recovered/Resolved]
  - Platelet count decreased [Recovered/Resolved]
  - Tracheostomy [Unknown]
  - Niemann-Pick disease [Unknown]
  - Haematochezia [Recovered/Resolved]
  - Disease progression [Unknown]
  - Drug interaction [Recovered/Resolved]
  - Pneumonia [Recovered/Resolved]
  - White blood cell count decreased [Recovered/Resolved]
  - Diarrhoea [Recovered/Resolved]
  - Urticaria [Recovering/Resolving]
  - Dystonia [Not Recovered/Not Resolved]

NARRATIVE: CASE EVENT DATE: 20130228
